FAERS Safety Report 10209369 (Version 1)
Quarter: 2014Q2

REPORT INFORMATION
  Report Type: Spontaneous
  Country: US (occurrence: US)
  Receive Date: 20140531
  Receipt Date: 20140531
  Transmission Date: 20141212
  Serious: No
  Sender: FDA-Public Use
  Company Number: US-009507513-1405USA015199

PATIENT
  Age: 16 Year
  Sex: Female

DRUGS (1)
  1. NEXPLANON [Suspect]
     Indication: CONTRACEPTION
     Dosage: ^1 SINGLE ROD^
     Route: 059
     Dates: start: 201309

REACTIONS (2)
  - Mood swings [Not Recovered/Not Resolved]
  - Breast pain [Not Recovered/Not Resolved]
